FAERS Safety Report 5832688-2 (Version None)
Quarter: 2008Q3

REPORT INFORMATION
  Report Type: 
  Country: None (occurrence: None)
  Receive Date: 20080804
  Receipt Date: 20080724
  Transmission Date: 20090109
  Serious: Yes (Hospitalization)
  Sender: FDA-Public Use
  Company Number: GB-PFIZER INC-2006075032

PATIENT
  Sex: Male
  Weight: 60 kg

DRUGS (15)
  1. PROVERA [Suspect]
     Route: 048
  2. AG-013,736 [Suspect]
     Indication: PANCREATIC CARCINOMA
     Route: 048
  3. GEMCITABINE [Suspect]
     Indication: PANCREATIC CARCINOMA
     Route: 042
  4. AUGMENTIN '125' [Suspect]
     Route: 048
     Dates: start: 20060601, end: 20060608
  5. GLICLAZIDE [Concomitant]
     Route: 048
  6. METFORMIN HCL [Concomitant]
     Route: 048
     Dates: start: 20060425, end: 20070401
  7. RAMIPRIL [Concomitant]
     Route: 048
  8. ATENOLOL [Concomitant]
     Route: 048
  9. DOMPERIDONE [Concomitant]
     Route: 048
  10. LANSOPRAZOLE [Concomitant]
     Route: 048
  11. PREDNISOLONE [Concomitant]
     Route: 048
     Dates: start: 20060601, end: 20060607
  12. FISH OIL [Concomitant]
     Route: 048
  13. CREON [Concomitant]
     Route: 048
  14. PARACETAMOL [Concomitant]
     Route: 048
  15. TOLTERODINE TARTRATE [Concomitant]
     Route: 048

REACTIONS (1)
  - ORAL CANDIDIASIS [None]
